FAERS Safety Report 10557952 (Version 3)
Quarter: 2014Q4

REPORT INFORMATION
  Report Type: Spontaneous
  Country: FR (occurrence: FR)
  Receive Date: 20141031
  Receipt Date: 20141111
  Transmission Date: 20150529
  Serious: Yes (Disabling, Congenital Anomaly, Other)
  Sender: FDA-Public Use
  Company Number: FR-PFIZER INC-2014294398

PATIENT
  Sex: Male
  Weight: 3.84 kg

DRUGS (2)
  1. INSULIN [Concomitant]
     Active Substance: INSULIN NOS
     Indication: GESTATIONAL DIABETES
     Dosage: UNK
     Route: 064
  2. LYRICA [Suspect]
     Active Substance: PREGABALIN
     Dosage: 300 MG, 2X/DAY
     Route: 064

REACTIONS (4)
  - Congenital spinal fusion [Unknown]
  - Maternal exposure during pregnancy [Unknown]
  - Hemivertebra [Unknown]
  - Chromosomal deletion [Unknown]
